FAERS Safety Report 5794416-9 (Version None)
Quarter: 2008Q2

REPORT INFORMATION
  Report Type: 
  Country: None (occurrence: None)
  Receive Date: 20080625
  Receipt Date: 20080610
  Transmission Date: 20081010
  Serious: Yes (Other)
  Sender: FDA-Public Use
  Company Number: B0525626A

PATIENT
  Age: 51 Year
  Sex: Male

DRUGS (3)
  1. LAMIVUDINE (FORMULATION UNKNOWN)(GENERIC) (LAMIVUDINE) [Suspect]
     Indication: HIV INFECTION
  2. ZIDOVUDINE [Suspect]
     Indication: HIV INFECTION
  3. EFAVIRENZ [Suspect]
     Indication: HIV INFECTION

REACTIONS (10)
  - GRANULOMA [None]
  - HAEMOGLOBIN ABNORMAL [None]
  - IMMUNE RECONSTITUTION SYNDROME [None]
  - LYMPHADENOPATHY [None]
  - MYCOBACTERIA TISSUE SPECIMEN TEST POSITIVE [None]
  - NECROSIS [None]
  - NIGHT SWEATS [None]
  - TUBERCULIN TEST POSITIVE [None]
  - TYPE IV HYPERSENSITIVITY REACTION [None]
  - WEIGHT DECREASED [None]
